FAERS Safety Report 16049069 (Version 2)
Quarter: 2019Q4

REPORT INFORMATION
  Report Type: Spontaneous
  Country: US (occurrence: US)
  Receive Date: 20190307
  Receipt Date: 20191023
  Transmission Date: 20200122
  Serious: Yes (Other)
  Sender: FDA-Public Use
  Company Number: US-ASTRAZENECA-2018SF65270

PATIENT

DRUGS (24)
  1. PROTONIX [Concomitant]
     Active Substance: PANTOPRAZOLE SODIUM
  2. WARFARIN [Concomitant]
     Active Substance: WARFARIN
  3. FUROSEMIDE. [Concomitant]
     Active Substance: FUROSEMIDE
  4. METHYLPREDNISOLON [Concomitant]
     Active Substance: METHYLPREDNISOLONE
  5. CEPHALEXIN. [Concomitant]
     Active Substance: CEPHALEXIN
  6. ALLOPURINOL. [Concomitant]
     Active Substance: ALLOPURINOL
  7. NEXIUM [Suspect]
     Active Substance: ESOMEPRAZOLE MAGNESIUM
     Route: 048
     Dates: start: 20160112
  8. MIDODRINE [Concomitant]
     Active Substance: MIDODRINE
  9. AZITHROMYCIN ANHYDROUS. [Concomitant]
     Active Substance: AZITHROMYCIN ANHYDROUS
  10. NEXIUM [Suspect]
     Active Substance: ESOMEPRAZOLE MAGNESIUM
     Route: 048
     Dates: start: 1993
  11. PANTOPRAZOLE [Concomitant]
     Active Substance: PANTOPRAZOLE
  12. COLCHICINE. [Concomitant]
     Active Substance: COLCHICINE
  13. METOLAZONE. [Concomitant]
     Active Substance: METOLAZONE
  14. NEXIUM [Suspect]
     Active Substance: ESOMEPRAZOLE MAGNESIUM
     Route: 048
     Dates: start: 20120330
  15. METFORMIN [Concomitant]
     Active Substance: METFORMIN HYDROCHLORIDE
  16. SOTALOL. [Concomitant]
     Active Substance: SOTALOL
  17. CYCLOBENZAPRINE. [Concomitant]
     Active Substance: CYCLOBENZAPRINE
  18. AMOXICILLIN. [Concomitant]
     Active Substance: AMOXICILLIN
  19. AMIODARONE [Concomitant]
     Active Substance: AMIODARONE
  20. XOPENEX [Concomitant]
     Active Substance: LEVALBUTEROL HYDROCHLORIDE
  21. LIDOCAINE. [Concomitant]
     Active Substance: LIDOCAINE
  22. TORSEMIDE. [Concomitant]
     Active Substance: TORSEMIDE
  23. INDOMETHACIN. [Concomitant]
     Active Substance: INDOMETHACIN
  24. DIGOXIN. [Concomitant]
     Active Substance: DIGOXIN

REACTIONS (2)
  - Renal failure [Unknown]
  - Renal injury [Unknown]
